FAERS Safety Report 6306960-6 (Version None)
Quarter: 2009Q3

REPORT INFORMATION
  Report Type: 
  Country: None (occurrence: None)
  Receive Date: 20090810
  Receipt Date: 20090727
  Transmission Date: 20100115
  Serious: Yes (Other)
  Sender: FDA-Public Use
  Company Number: 2009-03058

PATIENT
  Age: 75 Year
  Sex: Female

DRUGS (8)
  1. VELCADE [Suspect]
     Indication: MULTIPLE MYELOMA
     Dosage: 1.5 MG, INTRAVENOUS; 1MG, INTRAVENOUS
     Route: 042
     Dates: start: 20090507, end: 20090512
  2. VELCADE [Suspect]
     Indication: MULTIPLE MYELOMA
     Dosage: 1.5 MG, INTRAVENOUS; 1MG, INTRAVENOUS
     Route: 042
     Dates: start: 20090717, end: 20090717
  3. MELPHALAN HYDROCHLORIDE [Concomitant]
  4. PREDNISONE [Concomitant]
  5. MOTILIUM (DOMPERIDONE MALEATE) [Concomitant]
  6. NEXIUM [Concomitant]
  7. DILTIAZEM HYDROCHLORIDE [Concomitant]
  8. DIAFUSOR (GLYCERYL TRINITRATE) [Concomitant]

REACTIONS (6)
  - BLISTER [None]
  - CARDIAC FAILURE [None]
  - DYSPNOEA [None]
  - HOT FLUSH [None]
  - RASH ERYTHEMATOUS [None]
  - THROMBOCYTOPENIA [None]
